FAERS Safety Report 4932496-0 (Version None)
Quarter: 2006Q1

REPORT INFORMATION
  Report Type: 
  Country: None (occurrence: None)
  Receive Date: 20060303
  Receipt Date: 20051011
  Transmission Date: 20060701
  Serious: Yes (Hospitalization)
  Sender: FDA-Public Use
  Company Number: US-MERCK-0510USA06658

PATIENT
  Age: 52 Year
  Sex: Male

DRUGS (15)
  1. VIOXX [Suspect]
     Indication: ARTHRALGIA
     Route: 048
     Dates: start: 20010301, end: 20040901
  2. TOPROL-XL [Suspect]
     Indication: HYPERTENSION
     Route: 048
  3. PRINIVIL [Concomitant]
     Route: 048
  4. PAXIL [Concomitant]
     Route: 065
  5. PROTONIX [Concomitant]
     Route: 065
  6. TYLENOL (CAPLET) [Concomitant]
     Route: 065
  7. LIPITOR [Concomitant]
     Route: 065
  8. OXYCODONE [Concomitant]
     Route: 065
  9. SKELAXIN [Concomitant]
     Route: 065
  10. [THERAPY UNSPECIFIED] [Concomitant]
     Route: 065
  11. AMBIEN [Concomitant]
     Route: 065
  12. ACLOVATE [Concomitant]
     Route: 065
  13. CARBATROL [Concomitant]
     Route: 065
  14. SULINDAC [Concomitant]
     Route: 065
  15. FLEXERIL [Concomitant]
     Route: 065

REACTIONS (11)
  - BRADYCARDIA [None]
  - CEREBROVASCULAR DISORDER [None]
  - DEPRESSION [None]
  - DIFFICULTY IN WALKING [None]
  - DUODENITIS [None]
  - GASTROINTESTINAL HAEMORRHAGE [None]
  - HYPERTENSION [None]
  - INTERVERTEBRAL DISC PROTRUSION [None]
  - LACUNAR INFARCTION [None]
  - SLEEP APNOEA SYNDROME [None]
  - SPINAL COLUMN STENOSIS [None]
